FAERS Safety Report 16777448 (Version 1)
Quarter: 2019Q3

REPORT INFORMATION
  Report Type: Spontaneous
  Country: US (occurrence: US)
  Receive Date: 20190905
  Receipt Date: 20190905
  Transmission Date: 20191005
  Serious: Yes (Other)
  Sender: FDA-Public Use
  Company Number: US-TEVA-2019-US-1104136

PATIENT
  Age: 44 Year
  Sex: Female
  Weight: 67.5 kg

DRUGS (3)
  1. AJOVY [Suspect]
     Active Substance: FREMANEZUMAB-VFRM
     Indication: MIGRAINE
     Route: 065
  2. MAXALT [Concomitant]
     Active Substance: RIZATRIPTAN BENZOATE
  3. CELEXA [Concomitant]
     Active Substance: CITALOPRAM HYDROBROMIDE

REACTIONS (6)
  - Neck pain [Unknown]
  - Myalgia [Unknown]
  - Neuromuscular toxicity [Unknown]
  - Thyroid disorder [Unknown]
  - Thyroid mass [Unknown]
  - Ear pain [Unknown]

NARRATIVE: CASE EVENT DATE: 20181217
